FAERS Safety Report 17655882 (Version 1)
Quarter: 2020Q2

REPORT INFORMATION
  Report Type: Report from Study
  Country: AR (occurrence: AR)
  Receive Date: 20200410
  Receipt Date: 20200410
  Transmission Date: 20200713
  Serious: Yes (Hospitalization)
  Sender: FDA-Public Use
  Company Number: AR-AMGEN-ARGSL2019199276

PATIENT
  Age: 65 Year
  Sex: Female

DRUGS (1)
  1. VECTIBIX [Suspect]
     Active Substance: PANITUMUMAB
     Indication: COLORECTAL CANCER METASTATIC
     Dosage: UNK UNK, Q3WK (EVERY 21 DAYS)
     Route: 065
     Dates: start: 201911

REACTIONS (6)
  - Adverse event [Not Recovered/Not Resolved]
  - Alopecia [Not Recovered/Not Resolved]
  - Rash [Not Recovered/Not Resolved]
  - Hepatic pain [Not Recovered/Not Resolved]
  - Off label use [Unknown]
  - Physical disability [Unknown]

NARRATIVE: CASE EVENT DATE: 201911
